FAERS Safety Report 22321224 (Version 1)
Quarter: 2023Q2

REPORT INFORMATION
  Report Type: Spontaneous
  Country: BR (occurrence: BR)
  Receive Date: 20230515
  Receipt Date: 20230515
  Transmission Date: 20230722
  Serious: Yes (Other)
  Sender: FDA-Public Use
  Company Number: BR-ELI_LILLY_AND_COMPANY-BR202304008552

PATIENT
  Age: 78 Year
  Sex: Female

DRUGS (4)
  1. FORTEO [Suspect]
     Active Substance: TERIPARATIDE
     Indication: Osteoporosis
     Dosage: 20 MG, UNKNOWN
     Route: 058
     Dates: start: 20221026
  2. BACTRIM [Suspect]
     Active Substance: SULFAMETHOXAZOLE\TRIMETHOPRIM
     Indication: Peripheral swelling
     Dosage: 1 DOSAGE FORM, DAILY
  3. BACTRIM [Suspect]
     Active Substance: SULFAMETHOXAZOLE\TRIMETHOPRIM
     Indication: Limb injury
  4. BACTRIM [Suspect]
     Active Substance: SULFAMETHOXAZOLE\TRIMETHOPRIM
     Indication: Infection

REACTIONS (23)
  - Dementia Alzheimer^s type [Unknown]
  - Fall [Unknown]
  - Spinal fracture [Unknown]
  - Fractured coccyx [Unknown]
  - Memory impairment [Unknown]
  - Tendon rupture [Unknown]
  - Malaise [Unknown]
  - Knee deformity [Unknown]
  - Cartilage injury [Unknown]
  - Pain [Unknown]
  - Peripheral swelling [Unknown]
  - Limb injury [Unknown]
  - Arthralgia [Unknown]
  - Pruritus [Unknown]
  - Thermal burn [Not Recovered/Not Resolved]
  - Pyrexia [Unknown]
  - Burning sensation [Unknown]
  - Uterine leiomyoma [Unknown]
  - Sleep disorder [Unknown]
  - Infection [Unknown]
  - Injection site pain [Unknown]
  - Hypersensitivity [Unknown]
  - Incorrect product administration duration [Unknown]

NARRATIVE: CASE EVENT DATE: 20230301
